FAERS Safety Report 16083817 (Version 1)
Quarter: 2019Q1

REPORT INFORMATION
  Report Type: Spontaneous
  Country: US (occurrence: US)
  Receive Date: 20190318
  Receipt Date: 20190318
  Transmission Date: 20190418
  Serious: No
  Sender: FDA-Public Use
  Company Number: US-MYLANLABS-2019M1017982

PATIENT
  Sex: Female

DRUGS (1)
  1. THIAMINE HYDROCHLORIDE INJECTION, USP [Suspect]
     Active Substance: THIAMINE HYDROCHLORIDE
     Indication: CHRONIC FATIGUE SYNDROME
     Dosage: UNK
     Route: 065

REACTIONS (1)
  - Product use in unapproved indication [Unknown]
